FAERS Safety Report 23037763 (Version 1)
Quarter: 2023Q4

REPORT INFORMATION
  Report Type: Spontaneous
  Country: CA (occurrence: CA)
  Receive Date: 20231006
  Receipt Date: 20231006
  Transmission Date: 20240109
  Serious: Yes (Hospitalization, Other)
  Sender: FDA-Public Use
  Company Number: CA-MYLANLABS-2023M1103258

PATIENT
  Age: 52 Year
  Sex: Male

DRUGS (8)
  1. VALPROIC ACID [Suspect]
     Active Substance: VALPROIC ACID
     Indication: Major depression
     Dosage: UNK
     Route: 065
  2. LAMOTRIGINE [Suspect]
     Active Substance: LAMOTRIGINE
     Indication: Major depression
     Dosage: 200 MILLIGRAM, QD
     Route: 065
  3. ZOPICLONE [Suspect]
     Active Substance: ZOPICLONE
     Indication: Major depression
     Dosage: 7.5 MILLIGRAM, QD
     Route: 065
  4. CITALOPRAM [Suspect]
     Active Substance: CITALOPRAM HYDROBROMIDE
     Indication: Major depression
     Dosage: UNK
     Route: 065
  5. CLONAZEPAM [Suspect]
     Active Substance: CLONAZEPAM
     Indication: Major depression
     Dosage: 2.5 MILLIGRAM, QD
     Route: 065
  6. QUETIAPINE FUMARATE [Suspect]
     Active Substance: QUETIAPINE FUMARATE
     Indication: Insomnia
     Dosage: 100 MILLIGRAM, QD
     Route: 065
  7. RISPERIDONE [Suspect]
     Active Substance: RISPERIDONE
     Indication: Major depression
     Dosage: UNK
     Route: 065
  8. DANTROLENE SODIUM [Concomitant]
     Active Substance: DANTROLENE SODIUM
     Dosage: UNK
     Route: 065

REACTIONS (14)
  - Hallucination, auditory [Recovered/Resolved]
  - Neuroleptic malignant syndrome [Recovered/Resolved]
  - Blood creatine phosphokinase increased [Recovered/Resolved]
  - Disorientation [Recovered/Resolved]
  - Hypertension [Recovered/Resolved]
  - Hypertonia [Recovered/Resolved]
  - Muscle rigidity [Recovered/Resolved]
  - Psychiatric symptom [Recovered/Resolved]
  - Tachycardia [Recovered/Resolved]
  - Abnormal behaviour [Recovered/Resolved]
  - Speech disorder [Recovered/Resolved]
  - Agitation [Recovered/Resolved]
  - Tremor [Recovered/Resolved]
  - Off label use [Unknown]
